FAERS Safety Report 17330280 (Version 1)
Quarter: 2020Q1

REPORT INFORMATION
  Report Type: Spontaneous
  Country: FR (occurrence: FR)
  Receive Date: 20200127
  Receipt Date: 20200127
  Transmission Date: 20200409
  Serious: Yes (Life-Threatening)
  Sender: FDA-Public Use
  Company Number: FR-MYLANLABS-2020M1008771

PATIENT
  Age: 26 Year
  Sex: Female
  Weight: 60 kg

DRUGS (16)
  1. TOBRADEX [Concomitant]
     Active Substance: DEXAMETHASONE\TOBRAMYCIN
     Dosage: UNK
  2. NEULASTA [Concomitant]
     Active Substance: PEGFILGRASTIM
     Dosage: UNK
  3. DIFICLIR [Concomitant]
     Active Substance: FIDAXOMICIN
     Dosage: UNK
  4. MELPHALAN. [Suspect]
     Active Substance: MELPHALAN
     Indication: HODGKIN^S DISEASE
     Dosage: 230 MILLIGRAM, CYCLE (J5 BEAM)
     Route: 042
     Dates: start: 20191016, end: 20191016
  5. SPECIAFOLDINE [Concomitant]
     Active Substance: FOLIC ACID
     Dosage: UNK
  6. TRIFLUCAN [Concomitant]
     Active Substance: FLUCONAZOLE
     Dosage: UNK
  7. EMEND [Concomitant]
     Active Substance: APREPITANT
  8. INEXIUM                            /01479302/ [Concomitant]
     Active Substance: ESOMEPRAZOLE MAGNESIUM
     Dosage: UNK
  9. ETOPOSIDE. [Suspect]
     Active Substance: ETOPOSIDE
     Indication: HODGKIN^S DISEASE
     Dosage: 1320 MILLIGRAM, CYCLE (DE J2 ? J4 DU BEAM)
     Route: 042
     Dates: start: 20191013, end: 20191016
  10. CYTARABINE. [Suspect]
     Active Substance: CYTARABINE
     Indication: HODGKIN^S DISEASE
     Dosage: 320 MILLIGRAM, QD (DANS LE CADRE D^UN DHAX ? J1 PUIS D^UN BEAM DE J2 ? J5)
     Route: 042
     Dates: start: 20191013, end: 20191016
  11. ZELITREX [Concomitant]
     Active Substance: VALACYCLOVIR HYDROCHLORIDE
     Dosage: UNK
  12. CARMUSTINE. [Suspect]
     Active Substance: CARMUSTINE
     Indication: HODGKIN^S DISEASE
     Dosage: 489 MILLIGRAM, CYCLE (CYCLE BEAM C1J1)
     Route: 042
     Dates: start: 20191012, end: 20191012
  13. TAZOCILLINE [Concomitant]
     Active Substance: PIPERACILLIN SODIUM\TAZOBACTAM SODIUM
     Dosage: UNK
  14. EMEND [Concomitant]
     Active Substance: APREPITANT
     Dosage: UNK
  15. PLITICAN [Concomitant]
     Active Substance: ALIZAPRIDE HYDROCHLORIDE
     Dosage: UNK
  16. OXYNORM [Concomitant]
     Active Substance: OXYCODONE HYDROCHLORIDE
     Dosage: UNK

REACTIONS (1)
  - Venoocclusive liver disease [Recovering/Resolving]

NARRATIVE: CASE EVENT DATE: 20191029
